FAERS Safety Report 5483467-X (Version None)
Quarter: 2007Q4

REPORT INFORMATION
  Report Type: 
  Country: None (occurrence: None)
  Receive Date: 20071009
  Receipt Date: 20070920
  Transmission Date: 20080405
  Serious: Yes (Hospitalization)
  Sender: FDA-Public Use
  Company Number: C-07-0022

PATIENT
  Age: 27 Year
  Sex: Female
  Weight: 53.0709 kg

DRUGS (9)
  1. VALPROIC ACID SYRUP                                       (CODE 8621) [Suspect]
     Indication: EPILEPSY
     Dosage: 15ML 2/DAY BY MOUTH
     Dates: start: 20070809, end: 20070819
  2. ZONEGRIN [Concomitant]
  3. TRILEPTAL [Concomitant]
  4. RISPERDAL [Concomitant]
  5. ALESSE    (ORAL CONTRACEPTIVE PILL) [Concomitant]
  6. DULCOLAX [Concomitant]
  7. FOLIC ACID [Concomitant]
  8. VITAMIN B COMPLEX CAP [Concomitant]
  9. DIAZEPAM [Concomitant]

REACTIONS (3)
  - ANTICONVULSANT DRUG LEVEL BELOW THERAPEUTIC [None]
  - GRAND MAL CONVULSION [None]
  - THERAPEUTIC PRODUCT INEFFECTIVE [None]
